FAERS Safety Report 23304479 (Version 1)
Quarter: 2023Q4

REPORT INFORMATION
  Report Type: Report from Study
  Country: IT (occurrence: IT)
  Receive Date: 20231218
  Receipt Date: 20231218
  Transmission Date: 20240110
  Serious: Yes (Other)
  Sender: FDA-Public Use
  Company Number: None

PATIENT
  Age: 7 Year
  Weight: 38 kg

DRUGS (7)
  1. VINCRISTINE [Suspect]
     Active Substance: VINCRISTINE
     Indication: B-cell type acute leukaemia
     Dosage: 1.75 MG/DAY ON 11, 18, 25/09, 02/10/2023
     Route: 042
     Dates: start: 20230911, end: 20231002
  2. PANTOPRAZOLO SUN PHARMA [Concomitant]
     Indication: Prophylaxis against gastrointestinal ulcer
     Dosage: 40 MG/DAY
     Route: 042
     Dates: start: 20230905, end: 20231003
  3. PREDNISONE [Concomitant]
     Active Substance: PREDNISONE
     Indication: B-cell type acute leukaemia
     Dosage: 20 MG (4 TABLETS OF 5 MG)/DAY FROM DAY 08/09 TO DAY 03/10/203?5 MG/DAY FROM DAY 03 TO DAY 05/10/2...
     Route: 048
     Dates: start: 20230908, end: 20231013
  4. LANSOPRAZOLE [Concomitant]
     Active Substance: LANSOPRAZOLE
     Indication: Prophylaxis against gastrointestinal ulcer
     Route: 048
     Dates: start: 20231004, end: 20231015
  5. ONCASPAR [Suspect]
     Active Substance: PEGASPARGASE
     Indication: B-cell type acute leukaemia
     Dosage: 2895 U/I/DAY ON 15 AND 29/09/2023
     Route: 042
     Dates: start: 20230915, end: 20230929
  6. PREDNISONE [Concomitant]
     Active Substance: PREDNISONE
     Indication: B-cell type acute leukaemia
     Dosage: 25 MG/DAY FROM DAY 08/09 TO DAY 03/10/2023?25 MG/DAY FROM DAY 03 TO DAY 05/10/2023
     Route: 048
     Dates: start: 20230908, end: 20231005
  7. DAUNORUBICIN [Suspect]
     Active Substance: DAUNORUBICIN
     Indication: B-cell type acute leukaemia
     Dosage: 35 MG/DAY ON 11, 18, 25/09, 02/10/2023
     Route: 042
     Dates: start: 20230911, end: 20231002

REACTIONS (3)
  - Pancytopenia [Recovering/Resolving]
  - Anaemia [Recovered/Resolved]
  - Alopecia [Not Recovered/Not Resolved]

NARRATIVE: CASE EVENT DATE: 20230923
